FAERS Safety Report 5638785-9 (Version None)
Quarter: 2008Q1

REPORT INFORMATION
  Report Type: 
  Country: None (occurrence: None)
  Receive Date: 20080226
  Receipt Date: 20080226
  Transmission Date: 20080703
  Serious: Yes (Other)
  Sender: FDA-Public Use
  Company Number: A0711814A

PATIENT
  Age: 39 Year
  Sex: Female

DRUGS (3)
  1. ALLI [Suspect]
     Indication: WEIGHT LOSS DIET
     Route: 048
     Dates: start: 20080223, end: 20080225
  2. LUNESTA [Concomitant]
  3. MULTI-VITAMIN [Concomitant]

REACTIONS (13)
  - ABDOMINAL PAIN UPPER [None]
  - ABNORMAL FAECES [None]
  - CONSTIPATION [None]
  - DISORIENTATION [None]
  - DIZZINESS [None]
  - FATIGUE [None]
  - FEELING ABNORMAL [None]
  - FLATULENCE [None]
  - HEADACHE [None]
  - LETHARGY [None]
  - MELAENA [None]
  - VERTIGO [None]
  - WEIGHT INCREASED [None]
